FAERS Safety Report 7788361-7 (Version None)
Quarter: 2011Q3

REPORT INFORMATION
  Report Type: 
  Country: None (occurrence: None)
  Receive Date: 20110929
  Receipt Date: 20110929
  Transmission Date: 20111222
  Serious: No
  Sender: FDA-Public Use
  Company Number: None

PATIENT
  Age: 20 Year
  Sex: Female

DRUGS (1)
  1. MINOCYCLINE HCL [Suspect]
     Indication: LIVER INJURY
     Dates: start: 20091125, end: 20091221

REACTIONS (2)
  - HEPATITIS [None]
  - ANTINUCLEAR ANTIBODY POSITIVE [None]
